FAERS Safety Report 9921579 (Version 3)
Quarter: 2014Q2

REPORT INFORMATION
  Report Type: Spontaneous
  Country: US (occurrence: US)
  Receive Date: 20140225
  Receipt Date: 20140409
  Transmission Date: 20141212
  Serious: Yes (Other)
  Sender: FDA-Public Use
  Company Number: US-SA-2014SA022535

PATIENT
  Age: 75 Year
  Sex: Male

DRUGS (3)
  1. LANTUS SOLOSTAR [Suspect]
     Indication: TYPE 2 DIABETES MELLITUS
     Dosage: FROM: TWO YEARS. DOSE:45 UNIT(S)
     Route: 058
     Dates: start: 20120401, end: 20140217
  2. LANTUS SOLOSTAR [Suspect]
     Indication: TYPE 2 DIABETES MELLITUS
     Dosage: FROM: TWO YEARS. DOSE:45 UNIT(S)
     Route: 058
     Dates: start: 20140219
  3. SOLOSTAR [Concomitant]
     Indication: TYPE 2 DIABETES MELLITUS

REACTIONS (5)
  - Eye disorder [Unknown]
  - Eye swelling [Unknown]
  - Hearing impaired [Unknown]
  - Drug dose omission [Unknown]
  - Liquid product physical issue [Unknown]
